FAERS Safety Report 9272203 (Version 1)
Quarter: 2013Q2

REPORT INFORMATION
  Report Type: Spontaneous
  Country: US (occurrence: US)
  Receive Date: 20130506
  Receipt Date: 20130506
  Transmission Date: 20140414
  Serious: Yes (Other)
  Sender: FDA-Public Use
  Company Number: US-BAYER-2013-056129

PATIENT
  Age: 34 Year
  Sex: Female

DRUGS (11)
  1. YASMIN [Suspect]
  2. OCELLA [Suspect]
  3. SYNTHROID [Concomitant]
     Dosage: 50 ?G, DAILY
     Route: 048
     Dates: start: 20090912
  4. CLONIDINE [Concomitant]
     Dosage: 0.2 MG, UNK
     Route: 048
     Dates: start: 20090912
  5. SEROQUEL [Concomitant]
     Dosage: 600 MG, UNK
     Route: 048
     Dates: start: 20090912
  6. TEGRETOL [Concomitant]
     Dosage: 200 MG, UNK
     Route: 048
     Dates: start: 20090912
  7. SINGULAIR [Concomitant]
     Dosage: 10 MG, UNK
     Dates: start: 20090912
  8. REMERON [Concomitant]
     Dosage: 30 MG, UNK
     Route: 048
     Dates: start: 20090912
  9. MEDROL [Concomitant]
     Dosage: UNK
     Dates: start: 20090909
  10. VICODIN [Concomitant]
     Dosage: UNK
     Route: 048
     Dates: start: 20090909
  11. NORCO [Concomitant]

REACTIONS (1)
  - Deep vein thrombosis [Recovered/Resolved]
